FAERS Safety Report 4712224-4 (Version None)
Quarter: 2005Q3

REPORT INFORMATION
  Report Type: 
  Country: None (occurrence: None)
  Receive Date: 20050711
  Receipt Date: 20050629
  Transmission Date: 20060218
  Serious: Yes (Other)
  Sender: FDA-Public Use
  Company Number: 215735

PATIENT
  Age: 14 Year
  Sex: Male

DRUGS (1)
  1. NUTROPIN AQ [Suspect]
     Indication: GROWTH HORMONE DEFICIENCY
     Dosage: 2.3 MG, QD, SUBCUTANEOUS
     Route: 058
     Dates: start: 20001207

REACTIONS (2)
  - ARTHRALGIA [None]
  - COMPLEX REGIONAL PAIN SYNDROME [None]
